FAERS Safety Report 20459771 (Version 1)
Quarter: 2022Q1

REPORT INFORMATION
  Report Type: Spontaneous
  Country: US (occurrence: None)
  Receive Date: 20220211
  Receipt Date: 20220211
  Transmission Date: 20220424
  Serious: Yes (Death)
  Sender: FDA-Public Use
  Company Number: US-ROCHE-3022910

PATIENT
  Age: 94 Year
  Sex: Female

DRUGS (1)
  1. ESBRIET [Suspect]
     Active Substance: PIRFENIDONE
     Indication: Interstitial lung disease
     Dosage: 801 MG TID PO
     Route: 048
     Dates: start: 20210903

REACTIONS (1)
  - Death [Fatal]

NARRATIVE: CASE EVENT DATE: 20211213
